FAERS Safety Report 4817295-2 (Version None)
Quarter: 2005Q4

REPORT INFORMATION
  Report Type: 
  Country: None (occurrence: None)
  Receive Date: 20051031
  Receipt Date: 20051014
  Transmission Date: 20060501
  Serious: Yes (Congenital Anomaly)
  Sender: FDA-Public Use
  Company Number: FEI2005-2839

PATIENT
  Sex: Female

DRUGS (1)
  1. COPPER T [Suspect]

REACTIONS (4)
  - CARTILAGE INJURY [None]
  - CONGENITAL ANOMALY [None]
  - IUCD COMPLICATION [None]
  - PREGNANCY WITH CONTRACEPTIVE DEVICE [None]
